FAERS Safety Report 4682237-X (Version None)
Quarter: 2005Q2

REPORT INFORMATION
  Report Type: 
  Country: None (occurrence: None)
  Receive Date: 20050527
  Receipt Date: 20050411
  Transmission Date: 20051028
  Serious: Yes (Death)
  Sender: FDA-Public Use
  Company Number: A05-027

PATIENT
  Age: 16 Year
  Sex: Female

DRUGS (6)
  1. ALLERGENS [Suspect]
     Indication: ASTHMA
     Dosage: 4,000 PNU; SEE IMAGE
     Dates: start: 20041101
  2. ALLERGENS [Suspect]
     Indication: RHINITIS ALLERGIC
     Dosage: 4,000 PNU; SEE IMAGE
     Dates: start: 20041101
  3. FLOVENT [Concomitant]
  4. FORADIL [Concomitant]
  5. SINGULAIR [Concomitant]
  6. UNIPHYL AND FLONASE NASAL SPRAY [Concomitant]

REACTIONS (1)
  - NO ADVERSE DRUG EFFECT [None]
